FAERS Safety Report 11610251 (Version 1)
Quarter: 2015Q4

REPORT INFORMATION
  Report Type: Report from Study
  Country: US (occurrence: US)
  Receive Date: 20151008
  Receipt Date: 20151008
  Transmission Date: 20160304
  Serious: No
  Sender: FDA-Public Use
  Company Number: US-AMGEN-USASL2015103769

PATIENT
  Age: 52 Year
  Sex: Male

DRUGS (1)
  1. ENBREL [Suspect]
     Active Substance: ETANERCEPT
     Indication: RHEUMATOID ARTHRITIS
     Dosage: 50 MG, QWK
     Route: 065
     Dates: start: 2003

REACTIONS (8)
  - Urticaria [Not Recovered/Not Resolved]
  - Hypersensitivity [Unknown]
  - Gastrointestinal disorder [Unknown]
  - Cough [Unknown]
  - Incorrect product storage [Unknown]
  - Pruritus [Not Recovered/Not Resolved]
  - Respiratory symptom [Unknown]
  - Rash erythematous [Not Recovered/Not Resolved]

NARRATIVE: CASE EVENT DATE: 2015
